FAERS Safety Report 15121930 (Version 2)
Quarter: 2019Q1

REPORT INFORMATION
  Report Type: Spontaneous
  Country: JP (occurrence: JP)
  Receive Date: 20180709
  Receipt Date: 20190117
  Transmission Date: 20190417
  Serious: Yes (Other)
  Sender: FDA-Public Use
  Company Number: JP-PFIZER INC-2018267033

PATIENT
  Age: 6 Decade
  Sex: Female

DRUGS (1)
  1. RHEUMATREX [Suspect]
     Active Substance: METHOTREXATE SODIUM
     Dosage: 3 CAPSULES, WEEKLY
     Route: 048
     Dates: start: 2016

REACTIONS (1)
  - Haemorrhage subcutaneous [Unknown]
